FAERS Safety Report 6640835-8 (Version None)
Quarter: 2010Q1

REPORT INFORMATION
  Report Type: 
  Country: None (occurrence: None)
  Receive Date: 20100318
  Receipt Date: 20100307
  Transmission Date: 20100710
  Serious: Yes (Other)
  Sender: FDA-Public Use
  Company Number: JP-AMGEN-US326391

PATIENT
  Sex: Female
  Weight: 64 kg

DRUGS (13)
  1. ENBREL [Suspect]
     Indication: RHEUMATOID ARTHRITIS
     Route: 058
     Dates: start: 20070426, end: 20071102
  2. RHEUMATREX [Suspect]
     Indication: RHEUMATOID ARTHRITIS
     Route: 048
     Dates: start: 20060831
  3. RHEUMATREX [Suspect]
     Route: 048
  4. RHEUMATREX [Suspect]
     Route: 065
     Dates: start: 20070701
  5. INFLIXIMAB [Suspect]
     Dosage: 5 DOSES AT 3MG/KG
     Route: 042
     Dates: start: 20061005, end: 20070308
  6. FOLIC ACID [Concomitant]
     Indication: PROPHYLAXIS
     Route: 048
     Dates: start: 20060803
  7. RELIFEN [Concomitant]
     Indication: RHEUMATOID ARTHRITIS
     Route: 048
     Dates: start: 20060803, end: 20071207
  8. RELIFEN [Concomitant]
     Route: 048
     Dates: start: 20071207
  9. ISALON [Concomitant]
     Indication: PROPHYLAXIS
     Route: 048
     Dates: start: 20060803
  10. PREDNISOLONE [Concomitant]
     Indication: RHEUMATOID ARTHRITIS
     Route: 048
     Dates: start: 20070906
  11. PREDNISOLONE [Concomitant]
     Indication: RHEUMATOID ARTHRITIS
     Route: 048
     Dates: start: 20060803, end: 20070906
  12. PREDNISOLONE [Concomitant]
     Route: 065
  13. ACTONEL [Concomitant]
     Indication: OSTEOPOROSIS
     Route: 048
     Dates: start: 20060803

REACTIONS (1)
  - PNEUMONIA CRYPTOCOCCAL [None]
